FAERS Safety Report 8179909-1 (Version None)
Quarter: 2012Q1

REPORT INFORMATION
  Report Type: 
  Country: None (occurrence: None)
  Receive Date: 20120302
  Receipt Date: 20120221
  Transmission Date: 20120608
  Serious: No
  Sender: FDA-Public Use
  Company Number: US-JNJFOC-20120211265

PATIENT
  Sex: Female

DRUGS (3)
  1. DURAGESIC-100 [Suspect]
     Route: 062
     Dates: start: 20120103, end: 20120203
  2. METHADON HCL TAB [Suspect]
     Indication: ABDOMINAL PAIN
     Route: 065
     Dates: start: 20120203
  3. DURAGESIC-100 [Suspect]
     Indication: ABDOMINAL PAIN
     Route: 062
     Dates: start: 20120103, end: 20120203

REACTIONS (4)
  - DRUG ADMINISTERED AT INAPPROPRIATE SITE [None]
  - WRONG TECHNIQUE IN DRUG USAGE PROCESS [None]
  - DRUG EFFECT DECREASED [None]
  - PRODUCT QUALITY ISSUE [None]
